FAERS Safety Report 5378619-3 (Version None)
Quarter: 2007Q3

REPORT INFORMATION
  Report Type: 
  Country: None (occurrence: None)
  Receive Date: 20070702
  Receipt Date: 20070702
  Transmission Date: 20080115
  Serious: Yes (Hospitalization, Other)
  Sender: FDA-Public Use
  Company Number: None

PATIENT
  Age: 43 Year
  Sex: Female
  Weight: 47.1741 kg

DRUGS (1)
  1. LEVAQUIN [Suspect]
     Indication: URINARY TRACT INFECTION
     Dosage: 500MG 1X DAILY PO
     Route: 048
     Dates: start: 20061126, end: 20061130

REACTIONS (16)
  - ALOPECIA [None]
  - ARTHRALGIA [None]
  - BURNING SENSATION [None]
  - CHILLS [None]
  - DYSGEUSIA [None]
  - EYE IRRITATION [None]
  - HYPERKINESIA [None]
  - HYPOAESTHESIA [None]
  - MUSCLE TWITCHING [None]
  - PARAESTHESIA [None]
  - PARAESTHESIA ORAL [None]
  - PERIPHERAL COLDNESS [None]
  - SKIN BURNING SENSATION [None]
  - TIC [None]
  - TREMOR [None]
  - VIRAL INFECTION [None]
